FAERS Safety Report 9917441 (Version 1)
Quarter: 2014Q1

REPORT INFORMATION
  Report Type: Spontaneous
  Country: IT (occurrence: IT)
  Receive Date: 20140221
  Receipt Date: 20140221
  Transmission Date: 20141002
  Serious: Yes (Hospitalization)
  Sender: FDA-Public Use
  Company Number: IT-PFIZER INC-2014046952

PATIENT
  Age: 73 Year
  Sex: Male
  Weight: 73 kg

DRUGS (5)
  1. CYTARABINE [Suspect]
     Indication: MANTLE CELL LYMPHOMA REFRACTORY
     Dosage: 800 MG/M2, CYCLIC
     Route: 042
     Dates: start: 20130522, end: 20130726
  2. MABTHERA [Concomitant]
     Dosage: 375 MG/M2, UNK
     Route: 042
  3. LEVACT [Concomitant]
     Dosage: 70 MG/M2, UNK
     Route: 042
  4. TALAVIR [Concomitant]
     Dosage: 500 MG, UNK
     Route: 048
  5. LEVOXACIN [Concomitant]
     Dosage: 500 MG, UNK
     Route: 048

REACTIONS (2)
  - Off label use [Unknown]
  - Renal failure acute [Recovered/Resolved]
